FAERS Safety Report 5610407-2 (Version None)
Quarter: 2008Q1

REPORT INFORMATION
  Report Type: 
  Country: None (occurrence: None)
  Receive Date: 20080128
  Receipt Date: 20080115
  Transmission Date: 20080703
  Serious: Yes (Other)
  Sender: FDA-Public Use
  Company Number: 2008BI001629

PATIENT
  Sex: Female

DRUGS (2)
  1. TYSABRI [Suspect]
     Indication: MULTIPLE SCLEROSIS
     Dosage: 300 MG;QM;IV
     Route: 042
     Dates: start: 20071008
  2. AVONEX [Concomitant]

REACTIONS (8)
  - CONDITION AGGRAVATED [None]
  - ILL-DEFINED DISORDER [None]
  - NAUSEA [None]
  - PAIN [None]
  - PANCREATITIS CHRONIC [None]
  - RENAL DISORDER [None]
  - RHINORRHOEA [None]
  - THROAT IRRITATION [None]
